FAERS Safety Report 4398872-2 (Version None)
Quarter: 2004Q3

REPORT INFORMATION
  Report Type: 
  Country: None (occurrence: None)
  Receive Date: 20040712
  Receipt Date: 20040629
  Transmission Date: 20050211
  Serious: Yes (Hospitalization)
  Sender: FDA-Public Use
  Company Number: US-JNJFOC-20040401390

PATIENT
  Age: 58 Year
  Sex: Male

DRUGS (11)
  1. DURAGESIC [Suspect]
     Indication: PAIN
     Dosage: 50 UG/HR, 1 IN 48 HOUR, TRANSDERMAL, 100 UG/HR, 1 IN 72 HOUR, TRANSDERMAL
     Route: 062
     Dates: start: 20030901
  2. DIGOXIN [Concomitant]
  3. ZANTAC [Concomitant]
  4. ATENOLOL [Concomitant]
  5. ALTACE [Concomitant]
  6. PRAVACHOL (CHOLESTEROL- AND TRIGLYCERIDE REDUCERS) [Concomitant]
  7. ADDERALL (OBETROL) [Concomitant]
  8. WELLBUTRIN [Concomitant]
  9. OXYCODONE HCL [Concomitant]
  10. SOMA [Concomitant]
  11. LEXIPRO (SSRI) [Concomitant]

REACTIONS (10)
  - CAROTID ARTERY OCCLUSION [None]
  - CORONARY ARTERY OCCLUSION [None]
  - DYSPHAGIA [None]
  - HYPOXIA [None]
  - MYOCARDIAL INFARCTION [None]
  - NERVE COMPRESSION [None]
  - PAIN IN EXTREMITY [None]
  - PROCEDURAL COMPLICATION [None]
  - SOMNOLENCE [None]
  - TRANSIENT ISCHAEMIC ATTACK [None]
